FAERS Safety Report 9469914 (Version 1)
Quarter: 2013Q3

REPORT INFORMATION
  Report Type: Spontaneous
  Country: US (occurrence: None)
  Receive Date: 20130820
  Receipt Date: 20130820
  Transmission Date: 20140515
  Serious: Yes (Hospitalization)
  Sender: FDA-Public Use
  Company Number: None

PATIENT
  Age: 66 Year
  Sex: Male

DRUGS (1)
  1. NEXAVAR [Suspect]
     Indication: ILL-DEFINED DISORDER
     Route: 048
     Dates: start: 201306, end: 20130809

REACTIONS (2)
  - Cardiac failure [None]
  - Dyspnoea [None]
